FAERS Safety Report 25611081 (Version 1)
Quarter: 2025Q3

REPORT INFORMATION
  Report Type: Spontaneous
  Country: US (occurrence: None)
  Receive Date: 20250725
  Receipt Date: 20250725
  Transmission Date: 20251021
  Serious: No
  Sender: FDA-CTU
  Company Number: None

PATIENT
  Age: 52 Year
  Sex: Male

DRUGS (1)
  1. MYCAPSSA [Suspect]
     Active Substance: OCTREOTIDE
     Indication: Acromegaly
     Dosage: FREQUENCY : TWICE A DAY?
     Route: 048

REACTIONS (2)
  - Insulin-like growth factor increased [None]
  - Therapy change [None]

NARRATIVE: CASE EVENT DATE: 20250626
